FAERS Safety Report 8304424-1 (Version None)
Quarter: 2012Q2

REPORT INFORMATION
  Report Type: 
  Country: None (occurrence: None)
  Receive Date: 20120423
  Receipt Date: 20120418
  Transmission Date: 20120825
  Serious: Yes (Hospitalization)
  Sender: FDA-Public Use
  Company Number: IT-SANOFI-AVENTIS-2012SA023034

PATIENT
  Age: 91 Year
  Sex: Male

DRUGS (8)
  1. IRBESARTAN [Suspect]
     Route: 048
     Dates: start: 20100101, end: 20120322
  2. OMEPRAZOLE [Concomitant]
     Indication: PROPHYLAXIS AGAINST GASTROINTESTINAL ULCER
     Route: 048
  3. LACTULOSE [Concomitant]
     Indication: CONSTIPATION
     Route: 048
  4. LASIX [Suspect]
     Indication: ASCITES
     Route: 048
     Dates: start: 20100101
  5. ALDACTONE [Suspect]
     Route: 065
  6. METFORMIN HCL [Concomitant]
     Indication: TYPE 2 DIABETES MELLITUS
     Route: 048
  7. BECOZYM [Concomitant]
     Route: 048
  8. ALDACTONE [Suspect]
     Route: 048
     Dates: start: 20100101, end: 20120322

REACTIONS (3)
  - RENAL FAILURE ACUTE [None]
  - HYPERKALAEMIA [None]
  - HYPOTENSION [None]
